FAERS Safety Report 18300618 (Version 1)
Quarter: 2020Q3

REPORT INFORMATION
  Report Type: Spontaneous
  Country: CA (occurrence: CA)
  Receive Date: 20200923
  Receipt Date: 20200923
  Transmission Date: 20201103
  Serious: Yes (Hospitalization, Other)
  Sender: FDA-Public Use
  Company Number: CA-ALVOGEN-2020-ALVOGEN-114368

PATIENT
  Age: 52 Year
  Sex: Male
  Weight: 161 kg

DRUGS (5)
  1. ATENOLOL. [Suspect]
     Active Substance: ATENOLOL
     Indication: PRODUCT USED FOR UNKNOWN INDICATION
     Dosage: 50.0MG UNKNOWN
     Route: 048
  2. CLOZAPINE. [Suspect]
     Active Substance: CLOZAPINE
     Indication: SCHIZOPHRENIA
     Route: 048
  3. ZUCLOPENTHIXOL ACETATE [Suspect]
     Active Substance: ZUCLOPENTHIXOL ACETATE
     Indication: PRODUCT USED FOR UNKNOWN INDICATION
     Route: 065
  4. CLOZAPINE. [Suspect]
     Active Substance: CLOZAPINE
     Indication: SCHIZOPHRENIA
     Route: 065
  5. CLOZAPINE. [Suspect]
     Active Substance: CLOZAPINE
     Indication: SCHIZOPHRENIA
     Dosage: 25.0MG UNKNOWN
     Route: 048

REACTIONS (11)
  - Vomiting [Unknown]
  - Pyrexia [Unknown]
  - Blood creatine phosphokinase increased [Unknown]
  - Cardiomyopathy [Unknown]
  - Troponin increased [Unknown]
  - Nausea [Unknown]
  - Fatigue [Unknown]
  - Malaise [Unknown]
  - Constipation [Unknown]
  - Tachycardia [Unknown]
  - Myocarditis [Unknown]
